FAERS Safety Report 23471766 (Version 3)
Quarter: 2025Q3

REPORT INFORMATION
  Report Type: Report from Study
  Country: RS (occurrence: RS)
  Receive Date: 20240202
  Receipt Date: 20250803
  Transmission Date: 20251020
  Serious: Yes (Life-Threatening, Other)
  Sender: ALEXION PHARMACEUTICALS
  Company Number: 2024A025704

PATIENT
  Age: 57 Year
  Sex: Female
  Weight: 84 kg

DRUGS (12)
  1. SAPHNELO [Suspect]
     Active Substance: ANIFROLUMAB-FNIA
     Dosage: 300 MILLIGRAM, UNK, FREQUENCY: Q4W
     Dates: start: 20231121, end: 20231121
  2. PRONISON [Concomitant]
     Active Substance: PREDNISONE
     Indication: Systemic lupus erythematosus
  3. PANTOPRAZOLE SODIUM [Concomitant]
     Active Substance: PANTOPRAZOLE SODIUM
     Indication: Systemic lupus erythematosus
  4. CELLCEPT [Concomitant]
     Active Substance: MYCOPHENOLATE MOFETIL
     Indication: Systemic lupus erythematosus
  5. BROMAZEPAM [Concomitant]
     Active Substance: BROMAZEPAM
     Indication: Systemic lupus erythematosus
  6. DIGOXIN [Concomitant]
     Active Substance: DIGOXIN
  7. AMILORIDE HYDROCHLORIDE\METHYCLOTHIAZIDE [Concomitant]
     Active Substance: AMILORIDE HYDROCHLORIDE\METHYCLOTHIAZIDE
     Indication: Systemic lupus erythematosus
  8. ENALAPRIL [Concomitant]
     Active Substance: ENALAPRIL
     Indication: Systemic lupus erythematosus
  9. CHOLECALCIFEROL [Concomitant]
     Active Substance: CHOLECALCIFEROL
     Indication: Systemic lupus erythematosus
  10. ZOLOFT [Concomitant]
     Active Substance: SERTRALINE HYDROCHLORIDE
  11. DIKLOFEN DUO [Concomitant]
  12. UNSPECIFIED INGREDIENT [Concomitant]
     Active Substance: UNSPECIFIED INGREDIENT

REACTIONS (1)
  - Anaphylactic reaction [Recovered/Resolved]

NARRATIVE: CASE EVENT DATE: 20231121
